FAERS Safety Report 21160195 (Version 7)
Quarter: 2022Q4

REPORT INFORMATION
  Report Type: Report from Study
  Country: CN (occurrence: None)
  Receive Date: 20220802
  Receipt Date: 20221006
  Transmission Date: 20230112
  Serious: Yes (Other)
  Sender: FDA-Public Use
  Company Number: CN-Eisai Medical Research-EC-2022-120367

PATIENT
  Age: 49 Year
  Sex: Male
  Weight: 95 kg

DRUGS (7)
  1. LENVATINIB [Suspect]
     Active Substance: LENVATINIB
     Indication: Hepatocellular carcinoma
     Dosage: STARTING DOSE AT 12 MILLIGRAM; FLUCTUATED DOSAGE
     Route: 048
     Dates: start: 20210618, end: 20220725
  2. LENVATINIB [Suspect]
     Active Substance: LENVATINIB
     Route: 048
     Dates: start: 20220801
  3. PEMBROLIZUMAB [Suspect]
     Active Substance: PEMBROLIZUMAB
     Indication: Hepatocellular carcinoma
     Route: 041
     Dates: start: 20210618, end: 20220705
  4. PEMBROLIZUMAB [Suspect]
     Active Substance: PEMBROLIZUMAB
     Route: 041
     Dates: start: 20220824
  5. EPIRUBICIN [Suspect]
     Active Substance: EPIRUBICIN
     Indication: Hepatocellular carcinoma
     Dosage: FREQUENCY UNKNOWN
     Dates: start: 20210705, end: 20211227
  6. EPIRUBICIN [Suspect]
     Active Substance: EPIRUBICIN
     Dosage: FREQUENCY UNKNOWN
     Dates: start: 20220829
  7. ENTECAVIR [Concomitant]
     Active Substance: ENTECAVIR
     Dates: start: 202102

REACTIONS (1)
  - Platelet count decreased [Recovered/Resolved]

NARRATIVE: CASE EVENT DATE: 20220726
